FAERS Safety Report 7457757-5 (Version None)
Quarter: 2011Q2

REPORT INFORMATION
  Report Type: 
  Country: None (occurrence: None)
  Receive Date: 20110504
  Receipt Date: 20110428
  Transmission Date: 20111010
  Serious: Yes (Death)
  Sender: FDA-Public Use
  Company Number: DE-ROCHE-774411

PATIENT
  Sex: Male
  Weight: 90 kg

DRUGS (3)
  1. BEVACIZUMAB [Suspect]
     Dosage: DOSE: 7.5
     Route: 065
     Dates: start: 20100623, end: 20101223
  2. CISPLATIN [Concomitant]
     Dates: start: 20100623, end: 20101223
  3. TAXOL [Concomitant]
     Dates: start: 20100623, end: 20101223

REACTIONS (2)
  - NO THERAPEUTIC RESPONSE [None]
  - NEOPLASM MALIGNANT [None]
